FAERS Safety Report 8395124-0 (Version None)
Quarter: 2012Q1

REPORT INFORMATION
  Report Type: 
  Country: None (occurrence: None)
  Receive Date: 20120323
  Receipt Date: 20110824
  Transmission Date: 20120608
  Serious: Yes (Hospitalization)
  Sender: FDA-Public Use
  Company Number: 163-21880-11030172

PATIENT
  Age: 72 Year
  Sex: Female
  Weight: 97.2966 kg

DRUGS (30)
  1. REVLIMID [Suspect]
     Indication: MYELODYSPLASTIC SYNDROME
     Dosage: SEE IMAGE
     Route: 048
     Dates: start: 20100903, end: 20100929
  2. REVLIMID [Suspect]
     Indication: MYELODYSPLASTIC SYNDROME
     Dosage: SEE IMAGE
     Route: 048
     Dates: start: 20101014, end: 20101027
  3. REVLIMID [Suspect]
     Indication: MYELODYSPLASTIC SYNDROME
     Dosage: SEE IMAGE
     Route: 048
     Dates: start: 20101126, end: 20110317
  4. REVLIMID [Suspect]
     Indication: MYELODYSPLASTIC SYNDROME
     Dosage: SEE IMAGE
     Route: 048
     Dates: start: 20110412, end: 20110614
  5. REVLIMID [Suspect]
     Indication: MYELODYSPLASTIC SYNDROME
     Dosage: SEE IMAGE
     Route: 048
     Dates: start: 20101106, end: 20101119
  6. REGLAN [Concomitant]
  7. PROMETHAZINE [Concomitant]
  8. ULTRAM [Concomitant]
  9. FUROSEMIDE [Concomitant]
  10. ACETAMINOPHEN [Concomitant]
  11. EMLA (EMLA) [Concomitant]
  12. CYANOCOBALAMIN [Concomitant]
  13. DEXTROMETHORPHAN-GUAIFENESIN (TUSSIN DM) [Concomitant]
  14. METOPROLOL TARTRATE [Concomitant]
  15. ARIXTRA [Suspect]
     Indication: PRODUCT USED FOR UNKNOWN INDICATION
     Dosage: 7.5 MG, DAILY, SC ; 2.5 MG, DAILY, SC
     Route: 058
  16. KLOR-CON [Concomitant]
  17. ALLOPURINOL [Concomitant]
  18. GABAPENTIN [Concomitant]
  19. FOLIC ACID [Concomitant]
  20. LISINOPRIL [Concomitant]
  21. PRILOSEC OTC [Concomitant]
  22. GLIPIZIDE [Concomitant]
  23. LIDODERM [Concomitant]
  24. AZITHROMYCIN [Concomitant]
  25. ERGOCALCIFEROL [Concomitant]
  26. TRAZODONE HCL [Concomitant]
  27. CARDIZEM CD [Concomitant]
  28. CLARITIN [Concomitant]
  29. OXYCODONE HCL [Concomitant]
  30. EXJADE [Concomitant]

REACTIONS (7)
  - NEUTROPENIA [None]
  - THROMBOCYTOPENIA [None]
  - HAEMATOMA [None]
  - FEBRILE NEUTROPENIA [None]
  - DIARRHOEA [None]
  - NAUSEA [None]
  - INFLUENZA [None]
